FAERS Safety Report 6492646-4 (Version None)
Quarter: 2009Q4

REPORT INFORMATION
  Report Type: 
  Country: None (occurrence: None)
  Receive Date: 20091214
  Receipt Date: 20091201
  Transmission Date: 20100525
  Serious: Yes (Life-Threatening, Hospitalization, Other)
  Sender: FDA-Public Use
  Company Number: BE-SANOFI-AVENTIS-2009SA005711

PATIENT
  Age: 10 Year
  Sex: Male

DRUGS (2)
  1. DESMOPRESSIN ACETATE [Suspect]
     Route: 048
     Dates: start: 20070101, end: 20091119
  2. OXYBUTYNIN CHLORIDE [Concomitant]
     Route: 048
     Dates: start: 20080101

REACTIONS (2)
  - HYPONATRAEMIA [None]
  - STUPOR [None]
